FAERS Safety Report 8841242 (Version 3)
Quarter: 2012Q4

REPORT INFORMATION
  Report Type: 
  Country: US (occurrence: US)
  Receive Date: 20121015
  Receipt Date: 20121112
  Transmission Date: 20130627
  Serious: Yes (Hospitalization, Other)
  Sender: FDA-Public Use
  Company Number: US-ASTRAZENECA-2012SE77728

PATIENT
  Age: 60 Year
  Sex: Male
  Weight: 95.3 kg

DRUGS (14)
  1. SEROQUEL XR [Suspect]
     Indication: SUICIDAL IDEATION
     Route: 048
     Dates: start: 201011
  2. SEROQUEL XR [Suspect]
     Indication: PARANOIA
     Route: 048
     Dates: start: 201011
  3. SEROQUEL XR [Suspect]
     Indication: ANXIETY
     Route: 048
     Dates: start: 201011
  4. SEROQUEL XR [Suspect]
     Indication: MAJOR DEPRESSION
     Route: 048
     Dates: start: 201011
  5. ZOLOFT [Concomitant]
     Indication: ANXIETY
  6. LORAZEPAM [Concomitant]
     Indication: ANXIETY
  7. ZANTAC [Concomitant]
     Indication: VOMITING
     Dates: start: 2012
  8. PROTONIX [Concomitant]
     Indication: DYSPEPSIA
     Dates: start: 2012
  9. AMLODIPINE [Concomitant]
     Indication: BLOOD PRESSURE ABNORMAL
     Dates: start: 2010
  10. SIMVASTATIN [Concomitant]
     Indication: BLOOD CHOLESTEROL ABNORMAL
     Dates: start: 2010
  11. OXYCONTIN [Concomitant]
     Indication: PAIN
     Dosage: 5/325 MG, PRN
     Dates: start: 20121005
  12. HYDROCODONE [Concomitant]
     Indication: PAIN
     Dates: start: 2012
  13. MECLIZINE [Concomitant]
     Indication: MENIERE^S DISEASE
  14. COMPAZINE [Concomitant]
     Indication: NAUSEA

REACTIONS (15)
  - Suicidal ideation [Unknown]
  - Mental disorder [Unknown]
  - Balance disorder [Unknown]
  - Paranoia [Unknown]
  - Vomiting [Recovered/Resolved]
  - Pain in extremity [Unknown]
  - Gastrooesophageal reflux disease [Unknown]
  - Oesophageal food impaction [Unknown]
  - Memory impairment [Unknown]
  - Intervertebral disc protrusion [Unknown]
  - Hearing impaired [Unknown]
  - Hiatus hernia [Unknown]
  - Dysphagia [Unknown]
  - Dizziness [Unknown]
  - Drug ineffective [Unknown]
